FAERS Safety Report 10271898 (Version 2)
Quarter: 2015Q1

REPORT INFORMATION
  Report Type: Spontaneous
  Country: DK (occurrence: DK)
  Receive Date: 20140702
  Receipt Date: 20150121
  Transmission Date: 20150720
  Serious: Yes (Other)
  Sender: FDA-Public Use
  Company Number: PHHY2014DK078292

PATIENT
  Age: 39 Year
  Sex: Male
  Weight: 88 kg

DRUGS (9)
  1. LITIUMKARBONAT [Suspect]
     Active Substance: LITHIUM CARBONATE
     Indication: DEPRESSION
     Dosage: 900 MG, QD
     Route: 048
     Dates: start: 20131101
  2. IMOZOP [Suspect]
     Active Substance: ZOPICLONE
     Indication: DEPRESSION
     Dosage: 7.5 MG, QD
     Route: 048
     Dates: start: 20131101
  3. CETIRIZIN ACTAVIS [Concomitant]
     Active Substance: CETIRIZINE HYDROCHLORIDE
     Indication: HYPERSENSITIVITY
     Route: 065
     Dates: start: 19980101
  4. MARPLAN [Suspect]
     Active Substance: ISOCARBOXAZID
     Indication: DEPRESSION
     Dosage: 40 MG, QD
     Route: 048
     Dates: start: 20131101
  5. SAROTEN [Suspect]
     Active Substance: AMITRIPTYLINE
     Indication: DEPRESSION
     Dosage: 25 MG, QD
     Route: 048
     Dates: start: 20131101
  6. SEROQUEL [Suspect]
     Active Substance: QUETIAPINE FUMARATE
     Indication: DEPRESSION
     Dosage: 500 MG (200 +300 MG), QD
     Route: 048
     Dates: start: 20031101
  7. BRICANYL [Concomitant]
     Active Substance: TERBUTALINE SULFATE
     Indication: ASTHMA
     Dosage: UNK
     Route: 055
     Dates: start: 19900101
  8. SYMBICORT [Concomitant]
     Active Substance: BUDESONIDE\FORMOTEROL FUMARATE DIHYDRATE
     Indication: ASTHMA
     Dosage: UNK
     Route: 065
     Dates: start: 20090201
  9. OXAPAX [Suspect]
     Active Substance: OXAZEPAM
     Indication: DEPRESSION
     Dosage: 15 MG, PRN
     Route: 048
     Dates: start: 20131101

REACTIONS (12)
  - Weight increased [Recovering/Resolving]
  - Dizziness [Recovering/Resolving]
  - Dry mouth [Recovering/Resolving]
  - Eating disorder [Recovering/Resolving]
  - Erectile dysfunction [Recovering/Resolving]
  - Urinary retention [Recovering/Resolving]
  - Muscle twitching [Recovering/Resolving]
  - Hyperhidrosis [Recovering/Resolving]
  - Pollakiuria [Recovering/Resolving]
  - Constipation [Recovering/Resolving]
  - Thirst [Recovering/Resolving]
  - Vision blurred [Recovering/Resolving]

NARRATIVE: CASE EVENT DATE: 20131201
